FAERS Safety Report 9095261 (Version 1)
Quarter: 2013Q1

REPORT INFORMATION
  Report Type: Spontaneous
  Country: NL (occurrence: NL)
  Receive Date: 20130219
  Receipt Date: 20130219
  Transmission Date: 20140127
  Serious: Yes (Other)
  Sender: FDA-Public Use
  Company Number: PHHY2013NL014457

PATIENT
  Sex: Male

DRUGS (1)
  1. PAROXETINE [Suspect]

REACTIONS (1)
  - Homicide [Unknown]
